FAERS Safety Report 19157479 (Version 1)
Quarter: 2021Q2

REPORT INFORMATION
  Report Type: Spontaneous
  Country: US (occurrence: US)
  Receive Date: 20210419
  Receipt Date: 20210419
  Transmission Date: 20210717
  Serious: Yes (Hospitalization)
  Sender: FDA-Public Use
  Company Number: None

PATIENT
  Age: 62 Year
  Sex: Female
  Weight: 38.25 kg

DRUGS (7)
  1. WOMEN^S ONE A DAY [Concomitant]
     Active Substance: VITAMINS
  2. PROLIA [Concomitant]
     Active Substance: DENOSUMAB
  3. PROLIA [Suspect]
     Active Substance: DENOSUMAB
     Indication: OSTEOPOROSIS
     Dates: start: 20210330
  4. SIMPONI [Concomitant]
     Active Substance: GOLIMUMAB
  5. CALCIUM + VITAMIN D [Concomitant]
     Active Substance: CALCIUM\VITAMIN D
  6. LEFLUNAMIDE [Concomitant]
     Active Substance: LEFLUNOMIDE
  7. NABUMETONE. [Concomitant]
     Active Substance: NABUMETONE

REACTIONS (3)
  - Femur fracture [None]
  - Transfusion [None]
  - Medical device implantation [None]

NARRATIVE: CASE EVENT DATE: 20210416
